FAERS Safety Report 9775529 (Version 2)
Quarter: 2014Q2

REPORT INFORMATION
  Report Type: Spontaneous
  Country: US (occurrence: US)
  Receive Date: 20131220
  Receipt Date: 20140618
  Transmission Date: 20141212
  Serious: No
  Sender: FDA-Public Use
  Company Number: US-GALDERMA-US13003604

PATIENT
  Age: 61 Year
  Sex: Female

DRUGS (7)
  1. MIRVASO (BRIMONIDINE) TOPICAL GEL, 0.33% [Suspect]
     Indication: ROSACEA
     Dosage: 0.33%
     Route: 061
     Dates: start: 20131104, end: 20131105
  2. UNKNOWN CLEANSER [Concomitant]
     Indication: THERAPEUTIC SKIN CARE TOPICAL
     Route: 061
     Dates: start: 2009
  3. UNKNOWN MOISTURIZER [Concomitant]
     Indication: DRY SKIN PROPHYLAXIS
     Route: 061
     Dates: start: 2009
  4. UNKNOWN NIGHT CREAM [Concomitant]
     Indication: DRY SKIN PROPHYLAXIS
     Route: 061
     Dates: start: 2009
  5. METROPROLOL TARTRATE [Concomitant]
     Dosage: 25 MG
     Route: 048
  6. CRESTOR [Concomitant]
     Dosage: 10 MG
     Route: 048
  7. ASPIRIN [Concomitant]
     Dosage: 81 MG
     Route: 048

REACTIONS (7)
  - Condition aggravated [Recovered/Resolved]
  - Feeling hot [Recovered/Resolved]
  - Erythema [Recovered/Resolved]
  - Skin warm [Recovered/Resolved]
  - Dermatitis [Recovered/Resolved]
  - Skin burning sensation [Recovered/Resolved]
  - Off label use [Recovered/Resolved]
